FAERS Safety Report 12202257 (Version 3)
Quarter: 2016Q3

REPORT INFORMATION
  Report Type: Spontaneous
  Country: US (occurrence: US)
  Receive Date: 20160322
  Receipt Date: 20160701
  Transmission Date: 20161109
  Serious: Yes (Hospitalization)
  Sender: FDA-Public Use
  Company Number: US-ACTELION PHARMACEUTICALS US, INC.-A-US2016-132325

PATIENT
  Age: 47 Year
  Sex: Female

DRUGS (1)
  1. VELETRI [Suspect]
     Active Substance: EPOPROSTENOL
     Indication: PULMONARY HYPERTENSION
     Dosage: 20 NG/KG, PER MIN
     Route: 042
     Dates: start: 20121012

REACTIONS (7)
  - Complication associated with device [Unknown]
  - Cough [Unknown]
  - Catheter site swelling [Unknown]
  - Catheter site discharge [Unknown]
  - Device related infection [Unknown]
  - Infection [Unknown]
  - Catheter site erythema [Unknown]
